FAERS Safety Report 5083108-X (Version None)
Quarter: 2006Q3

REPORT INFORMATION
  Report Type: 
  Country: None (occurrence: None)
  Receive Date: 20060720
  Receipt Date: 20060509
  Transmission Date: 20061208
  Serious: Yes (Hospitalization, Other)
  Sender: FDA-Public Use
  Company Number: 2006062479

PATIENT
  Age: 31 Year
  Sex: Male
  Weight: 145.151 kg

DRUGS (1)
  1. CELEBREX [Suspect]
     Indication: ARTHRALGIA
     Dosage: 400 MG (400 MG, 1 IN 1 D)
     Dates: start: 20040501, end: 20040701

REACTIONS (3)
  - CHEST PAIN [None]
  - DEPRESSION [None]
  - MYOCARDIAL INFARCTION [None]
